FAERS Safety Report 5095491-X (Version None)
Quarter: 2006Q3

REPORT INFORMATION
  Report Type: 
  Country: None (occurrence: None)
  Receive Date: 20060901
  Receipt Date: 20060901
  Transmission Date: 20061208
  Serious: Yes (Other)
  Sender: FDA-Public Use
  Company Number: None

PATIENT
  Age: 64 Year
  Sex: Female
  Weight: 105.2345 kg

DRUGS (1)
  1. DIAZEPAM [Suspect]
     Indication: ANXIETY
     Dosage: 5 MG TID PRN PO
     Route: 048
     Dates: start: 20040225

REACTIONS (3)
  - DRUG INEFFECTIVE [None]
  - PRURITUS [None]
  - RASH [None]
